FAERS Safety Report 21363622 (Version 1)
Quarter: 2022Q3

REPORT INFORMATION
  Report Type: Spontaneous
  Country: FR (occurrence: FR)
  Receive Date: 20220922
  Receipt Date: 20220922
  Transmission Date: 20221027
  Serious: Yes (Other)
  Sender: FDA-Public Use
  Company Number: FR-AMGEN-FRASP2022158651

PATIENT

DRUGS (6)
  1. ADALIMUMAB [Suspect]
     Active Substance: ADALIMUMAB
     Indication: Inflammatory bowel disease
     Dosage: UNK
     Route: 065
  2. ADALIMUMAB [Suspect]
     Active Substance: ADALIMUMAB
     Indication: Colitis ulcerative
  3. ADALIMUMAB [Suspect]
     Active Substance: ADALIMUMAB
     Indication: Crohn^s disease
  4. INFLIXIMAB [Suspect]
     Active Substance: INFLIXIMAB
     Indication: Inflammatory bowel disease
     Route: 065
  5. GOLIMUMAB [Suspect]
     Active Substance: GOLIMUMAB
     Indication: Inflammatory bowel disease
     Route: 065
  6. METHOTREXATE [Concomitant]
     Active Substance: METHOTREXATE
     Indication: Product used for unknown indication
     Dosage: UNK
     Route: 065

REACTIONS (14)
  - Acute febrile neutrophilic dermatosis [Unknown]
  - Dermatitis bullous [Unknown]
  - Pyoderma gangrenosum [Unknown]
  - Dermatitis exfoliative generalised [Unknown]
  - Inflammatory bowel disease [Unknown]
  - Sarcoidosis [Unknown]
  - Dermatitis psoriasiform [Unknown]
  - Xerosis [Unknown]
  - Alopecia areata [Unknown]
  - Hidradenitis [Unknown]
  - Skin lesion [Unknown]
  - Eczema [Unknown]
  - Vasculitis [Unknown]
  - Urticaria [Unknown]
